FAERS Safety Report 12282241 (Version 1)
Quarter: 2016Q2

REPORT INFORMATION
  Report Type: Spontaneous
  Country: US (occurrence: None)
  Receive Date: 20160418
  Receipt Date: 20160418
  Transmission Date: 20160815
  Serious: Yes (Life-Threatening, Hospitalization)
  Sender: FDA-Public Use
  Company Number: None

PATIENT
  Age: 55 Year
  Sex: Male
  Weight: 121.5 kg

DRUGS (6)
  1. RAMIPRIL. [Concomitant]
     Active Substance: RAMIPRIL
  2. FARXIGA [Suspect]
     Active Substance: DAPAGLIFLOZIN PROPANEDIOL
     Indication: DIABETES MELLITUS
     Route: 048
  3. LANTUS [Concomitant]
     Active Substance: INSULIN GLARGINE
  4. VYTORIN [Concomitant]
     Active Substance: EZETIMIBE\SIMVASTATIN
  5. OMEPRAZOLE. [Concomitant]
     Active Substance: OMEPRAZOLE
  6. INSULIN LISPRO [Concomitant]
     Active Substance: INSULIN LISPRO

REACTIONS (15)
  - Nodal arrhythmia [None]
  - Nausea [None]
  - Lipase increased [None]
  - Vomiting [None]
  - Blood glucose increased [None]
  - Lethargy [None]
  - Polydipsia [None]
  - Dehydration [None]
  - Alcohol use [None]
  - Tachypnoea [None]
  - Acidosis [None]
  - Creatinine renal clearance decreased [None]
  - Abdominal pain [None]
  - Food poisoning [None]
  - Dizziness [None]

NARRATIVE: CASE EVENT DATE: 20160414
